FAERS Safety Report 5576515-X (Version None)
Quarter: 2007Q4

REPORT INFORMATION
  Report Type: 
  Country: None (occurrence: None)
  Receive Date: 20071228
  Receipt Date: 20071219
  Transmission Date: 20080405
  Serious: Yes (Hospitalization)
  Sender: FDA-Public Use
  Company Number: B0485653A

PATIENT
  Age: 81 Year
  Sex: Male
  Weight: 46 kg

DRUGS (8)
  1. VALTREX [Suspect]
     Indication: HERPES ZOSTER
     Dosage: 1000MG THREE TIMES PER DAY
     Route: 048
     Dates: start: 20070817, end: 20070818
  2. CALTAN [Concomitant]
     Dosage: 3000MG PER DAY
     Route: 048
  3. EBASTEL [Concomitant]
     Dosage: 5MG PER DAY
     Route: 048
  4. NORVASK [Concomitant]
     Indication: HYPERTENSION
     Dosage: 10MG PER DAY
     Route: 048
  5. FUROSEMIDE [Concomitant]
     Dosage: 40MG PER DAY
     Route: 048
  6. ARTIST [Concomitant]
     Indication: HYPERTENSION
     Dosage: 20MG PER DAY
     Route: 048
  7. OLMETEC [Concomitant]
     Dosage: 20MG PER DAY
     Route: 048
  8. ALFAROL [Concomitant]
     Dosage: .5MG PER DAY
     Route: 048

REACTIONS (8)
  - ALTERED STATE OF CONSCIOUSNESS [None]
  - COMA [None]
  - CONVULSION [None]
  - DYSARTHRIA [None]
  - DYSLALIA [None]
  - ENCEPHALOPATHY [None]
  - FEELING ABNORMAL [None]
  - GAIT DISTURBANCE [None]
